FAERS Safety Report 15193317 (Version 1)
Quarter: 2018Q3

REPORT INFORMATION
  Report Type: Spontaneous
  Country: US (occurrence: US)
  Receive Date: 20180626
  Receipt Date: 20180626
  Transmission Date: 20181010
  Serious: Yes (Other)
  Sender: FDA-Public Use
  Company Number: None

PATIENT
  Age: 21 Year
  Sex: Male
  Weight: 56.25 kg

DRUGS (17)
  1. VITAMIN D3 SOFTGEL [Concomitant]
  2. CALCIUM CITRATE [Concomitant]
     Active Substance: CALCIUM CITRATE
  3. KYOLIC AGED GARLIC POWDER [Concomitant]
  4. FLUOXETINE, PROZAC GENERIC [Suspect]
     Active Substance: FLUOXETINE HYDROCHLORIDE
     Indication: DEPRESSION
     Dates: start: 20170820, end: 20171101
  5. VITAMIN K2 MK?7 [Concomitant]
  6. NOW FOODS PROBIOTIC?10 [Concomitant]
  7. JARROW FORUMULAS ZINC BALANCE [Concomitant]
  8. DR^S BEST MAGNESIUM CHELATED [Concomitant]
  9. FLUOXETINE, PROZAC GENERIC [Suspect]
     Active Substance: FLUOXETINE HYDROCHLORIDE
     Indication: OBSESSIVE-COMPULSIVE DISORDER
     Dates: start: 20170820, end: 20171101
  10. VITAMIN C [Concomitant]
     Active Substance: ASCORBIC ACID
  11. NOW FOODS SPIRULINA TABLETS [Concomitant]
  12. BIOASTIN ASTAXANTHIN [Concomitant]
  13. FLUOXETINE, PROZAC GENERIC [Suspect]
     Active Substance: FLUOXETINE HYDROCHLORIDE
     Indication: ANXIETY
     Dates: start: 20170820, end: 20171101
  14. FLUOXETINE, PROZAC GENERIC [Suspect]
     Active Substance: FLUOXETINE HYDROCHLORIDE
     Indication: AUTISM SPECTRUM DISORDER
     Dates: start: 20170820, end: 20171101
  15. ESCITALOPRAM [Concomitant]
     Active Substance: ESCITALOPRAM OXALATE
  16. FISH OIL [Concomitant]
     Active Substance: FISH OIL
  17. VYVANSE [Concomitant]
     Active Substance: LISDEXAMFETAMINE DIMESYLATE

REACTIONS (5)
  - Limb injury [None]
  - Intentional product use issue [None]
  - Gait disturbance [None]
  - Anger [None]
  - Pain in extremity [None]

NARRATIVE: CASE EVENT DATE: 20171206
